FAERS Safety Report 8255492-7 (Version None)
Quarter: 2012Q2

REPORT INFORMATION
  Report Type: 
  Country: None (occurrence: None)
  Receive Date: 20120403
  Receipt Date: 20120326
  Transmission Date: 20120825
  Serious: Yes (Other)
  Sender: FDA-Public Use
  Company Number: US-AMGEN-USASP2012019624

PATIENT
  Age: 63 Year
  Sex: Female

DRUGS (3)
  1. ENBREL [Suspect]
     Indication: PSORIATIC ARTHROPATHY
     Dosage: 25 MG, ONCE IN FIVE DAYS
     Dates: start: 20010502
  2. ENBREL [Suspect]
     Indication: PSORIASIS
  3. LITHIUM CARBONATE [Concomitant]
     Indication: DEPRESSION
     Dosage: UNK

REACTIONS (5)
  - DEPRESSION [None]
  - DIABETES MELLITUS [None]
  - LARYNGITIS [None]
  - PSORIASIS [None]
  - INFECTION [None]
